FAERS Safety Report 24171203 (Version 1)
Quarter: 2024Q3

REPORT INFORMATION
  Report Type: Spontaneous
  Country: US (occurrence: US)
  Receive Date: 20240805
  Receipt Date: 20240805
  Transmission Date: 20241017
  Serious: No
  Sender: RANBAXY
  Company Number: US-SUN PHARMACEUTICAL INDUSTRIES LTD-2023R1-400627

PATIENT
  Sex: Male

DRUGS (3)
  1. ODOMZO [Suspect]
     Active Substance: SONIDEGIB
     Indication: Basal cell naevus syndrome
     Dosage: 200 MILLIGRAM EVERY OTHER DAY
     Route: 065
  2. ODOMZO [Suspect]
     Active Substance: SONIDEGIB
     Dosage: 1 CAPSULE,  QD
     Route: 048
  3. ODOMZO [Suspect]
     Active Substance: SONIDEGIB
     Dosage: UNK, BID
     Route: 065

REACTIONS (5)
  - Off label use [Unknown]
  - Arthralgia [Unknown]
  - Alopecia [Unknown]
  - Off label use [Unknown]
  - Madarosis [Unknown]
